FAERS Safety Report 4974237-7 (Version None)
Quarter: 2006Q2

REPORT INFORMATION
  Report Type: 
  Country: None (occurrence: None)
  Receive Date: 20060417
  Receipt Date: 20060310
  Transmission Date: 20061013
  Serious: Yes (Hospitalization)
  Sender: FDA-Public Use
  Company Number: FR-BRISTOL-MYERS SQUIBB COMPANY-13310602

PATIENT
  Age: 43 Year
  Sex: Male
  Weight: 68 kg

DRUGS (5)
  1. REYATAZ [Suspect]
     Indication: HIV TEST POSITIVE
     Route: 048
  2. VIDEX EC [Suspect]
     Indication: HIV TEST POSITIVE
     Route: 048
  3. EPIVIR [Suspect]
     Indication: HIV TEST POSITIVE
     Route: 048
  4. NORVIR [Suspect]
     Indication: HIV TEST POSITIVE
     Route: 048
  5. LEDERFOLINE [Suspect]
     Indication: PROPHYLAXIS
     Route: 048

REACTIONS (2)
  - NEPHROLITHIASIS [None]
  - RENAL COLIC [None]
